FAERS Safety Report 16779265 (Version 2)
Quarter: 2019Q3

REPORT INFORMATION
  Report Type: Spontaneous
  Country: US (occurrence: US)
  Receive Date: 20190906
  Receipt Date: 20190930
  Transmission Date: 20191005
  Serious: Yes (Hospitalization)
  Sender: FDA-Public Use
  Company Number: US-PFIZER INC-2019382967

PATIENT
  Age: 72 Year
  Sex: Female

DRUGS (30)
  1. ACLOVATE [Concomitant]
     Active Substance: ALCLOMETASONE DIPROPIONATE
     Dosage: UNK, 2X/DAY
     Route: 061
  2. ATIVAN [Concomitant]
     Active Substance: LORAZEPAM
     Indication: ANXIETY
     Dosage: 0.5 MG, AS NEEDED (EVERY 6 (SIX) HOURS AS NEEDED)
     Route: 048
  3. VENTOLIN HFA [Concomitant]
     Active Substance: ALBUTEROL SULFATE
     Indication: WHEEZING
     Dosage: 2 DF, AS NEEDED (INHALE 2 PUFFS EVERY 6 (SIX) HOURS AS NEEDED )
     Route: 055
  4. PRED FORTE [Concomitant]
     Active Substance: PREDNISOLONE ACETATE
     Dosage: 1 GTT, 4X/DAY, [INSTILL 1 DROP INTO THE LEFT EYE 4 (FOUR) TIMES A DAY]
     Route: 047
  5. CHOLECALCIFEROL [Concomitant]
     Active Substance: CHOLECALCIFEROL
     Dosage: 2000 IU, DAILY
     Route: 048
  6. BANOPHEN [Concomitant]
     Active Substance: DIPHENHYDRAMINE HYDROCHLORIDE
     Indication: PRURITUS
     Dosage: 25 MG, AS NEEDED (TAKE ONE CAPSULE BY MOUTH EVERY 8 HOURS AS NEEDED)
     Route: 048
  7. CYMBALTA [Concomitant]
     Active Substance: DULOXETINE HYDROCHLORIDE
     Dosage: 30 MG, DAILY, [TAKE 1 CAPSULE (30 MG TOTAL) BY MOUTH DAILY]
     Route: 048
  8. DURAGESIC [Concomitant]
     Active Substance: FENTANYL
     Dosage: UNK, [ 75 MCG/HR], [APPLY 1 PATCH ON THE SKIN EVERY THIRD DAY FOR 30 DAYS. MAX DAILY AMOUNT: 1 PATC]
     Route: 061
  9. SYNTHROID [Concomitant]
     Active Substance: LEVOTHYROXINE SODIUM
     Dosage: 50 UG, DAILY
  10. LOPRESSOR [Concomitant]
     Active Substance: METOPROLOL TARTRATE
     Dosage: 25 MG, 2X/DAY
     Route: 048
  11. COMPAZINE [Concomitant]
     Active Substance: PROCHLORPERAZINE MALEATE
     Indication: NAUSEA
     Dosage: 10 MG, AS NEEDED (EVERY 6 (SIX) HOURS AS NEEDED )
     Route: 048
  12. OSCAL D [Concomitant]
     Active Substance: CALCIUM CARBONATE\CHOLECALCIFEROL
     Dosage: UNK, 2X/DAY, [TAKE 1 TABLET BY MOUTH 2 (TWO) TIMES A DAY], [500-200MG UNIT]
     Route: 048
  13. ZOFRAN [Concomitant]
     Active Substance: ONDANSETRON HYDROCHLORIDE
     Indication: NAUSEA
     Dosage: 8 MG, AS NEEDED (EVERY 6 (SIX) HOURS AS NEEDED )
     Route: 048
  14. COUMADIN [Concomitant]
     Active Substance: WARFARIN SODIUM
     Dosage: 5 MG, DAILY
     Route: 048
  15. PROVENTIL HFA [Concomitant]
     Active Substance: ALBUTEROL SULFATE
     Indication: WHEEZING
     Dosage: 2 DF, AS NEEDED (INHALE 2 PUFFS EVERY 6 (SIX) HOURS AS NEEDED )
     Route: 055
  16. BUMEX [Concomitant]
     Active Substance: BUMETANIDE
     Dosage: 1 MG, DAILY (: TAKE 1 MG BY MOUTH DAILY)
     Route: 048
  17. DECADRON [Concomitant]
     Active Substance: DEXAMETHASONE
     Dosage: 10 ML, 4X/DAY (TAKE 10 ML (1 MG TOTAL) BY MOUTH 4 (FOUR) TIMES A DAY. SWISH FOR 2 MINUTES AND SPIT)
     Route: 048
  18. AFINITOR [Concomitant]
     Active Substance: EVEROLIMUS
     Dosage: 10 MG, DAILY
     Route: 048
  19. ZOFRAN [Concomitant]
     Active Substance: ONDANSETRON HYDROCHLORIDE
     Indication: VOMITING
  20. AROMASIN [Suspect]
     Active Substance: EXEMESTANE
     Dosage: 25 MG, DAILY (TAKE AFTER MEAL)
     Route: 048
     Dates: start: 20190822
  21. ROCALTROL [Concomitant]
     Active Substance: CALCITRIOL
     Dosage: 0.25 UG, WEEKLY
     Route: 048
  22. CLARITIN [Concomitant]
     Active Substance: LORATADINE
     Dosage: 10 MG, DAILY
     Route: 048
  23. PRILOSEC [Concomitant]
     Active Substance: OMEPRAZOLE MAGNESIUM
     Dosage: 20 MG, 2X/DAY
     Route: 048
  24. COMPAZINE [Concomitant]
     Active Substance: PROCHLORPERAZINE MALEATE
     Indication: VOMITING
  25. AROMASIN [Suspect]
     Active Substance: EXEMESTANE
     Indication: BREAST CANCER FEMALE
     Dosage: 25 MG, DAILY (TAKE AFTER MEAL)
     Route: 048
     Dates: start: 20190514, end: 20190718
  26. ZOVIRAX [Concomitant]
     Active Substance: ACYCLOVIR
     Dosage: 200 MG, 2X/DAY
     Route: 048
  27. MAG-OX [Concomitant]
     Active Substance: MAGNESIUM OXIDE
     Dosage: 400 MG, DAILY
     Route: 048
  28. ALBUTEROL HFA [Concomitant]
     Active Substance: ALBUTEROL SULFATE
     Indication: WHEEZING
     Dosage: 2 DF, AS NEEDED (INHALE 2 PUFFS EVERY 6 (SIX) HOURS AS NEEDED )
     Route: 055
  29. ROXICODONE [Concomitant]
     Active Substance: OXYCODONE HYDROCHLORIDE
     Indication: PAIN
     Dosage: 10 MG, AS NEEDED (EVERY 4 (FOUR) HOURS AS NEEDED )
     Route: 048
  30. COUMADIN [Concomitant]
     Active Substance: WARFARIN SODIUM
     Dosage: 1 MG, DAILY
     Route: 048

REACTIONS (1)
  - Herpes zoster [Recovered/Resolved]

NARRATIVE: CASE EVENT DATE: 201907
